FAERS Safety Report 8804953 (Version 3)
Quarter: 2012Q4

REPORT INFORMATION
  Report Type: 
  Country: SE (occurrence: SE)
  Receive Date: 20120924
  Receipt Date: 20121120
  Transmission Date: 20130627
  Serious: Yes (Hospitalization)
  Sender: FDA-Public Use
  Company Number: SE-AMGEN-SWESP2012059661

PATIENT
  Age: 69 Year
  Sex: Male

DRUGS (16)
  1. XGEVA [Suspect]
     Indication: PROSTATE CANCER
     Dosage: 120 mg, one time dose
     Route: 058
     Dates: start: 20120726, end: 20120726
  2. CALCIUM [Concomitant]
  3. VITAMIN D /00107901/ [Concomitant]
  4. VITAMIN D3 [Concomitant]
  5. IDEOS [Concomitant]
     Dosage: 500mg/400IU
  6. CASODEX [Concomitant]
     Indication: PROSTATE CANCER
  7. SUPREFACT [Concomitant]
     Indication: PROSTATE CANCER
  8. TROMBYL [Concomitant]
  9. BEHEPAN [Concomitant]
  10. TRANDATE [Concomitant]
  11. CRESTOR [Concomitant]
  12. PANODIL [Concomitant]
  13. INSULIN [Concomitant]
     Indication: DIABETES MELLITUS
  14. OMEPRAZOLE [Concomitant]
  15. DOLCONTIN                          /00036302/ [Concomitant]
  16. MORFIN                             /00036301/ [Concomitant]
     Dosage: UNK UNK, prn

REACTIONS (8)
  - Hypocalcaemia [Not Recovered/Not Resolved]
  - Blood potassium increased [Not Recovered/Not Resolved]
  - Haemoglobin decreased [Unknown]
  - Blood creatinine increased [Recovered/Resolved]
  - Paraesthesia [Unknown]
  - Gait disturbance [Unknown]
  - Gout [Recovered/Resolved]
  - General physical health deterioration [Unknown]
